FAERS Safety Report 9435346 (Version 1)
Quarter: 2013Q3

REPORT INFORMATION
  Report Type: Spontaneous
  Country: US (occurrence: US)
  Receive Date: 20130801
  Receipt Date: 20130801
  Transmission Date: 20140515
  Serious: Yes (Death)
  Sender: FDA-Public Use
  Company Number: US-GLAXOSMITHKLINE-A1000044A

PATIENT
  Age: 63 Year
  Sex: Female
  Weight: 50 kg

DRUGS (5)
  1. VOTRIENT [Suspect]
     Indication: SARCOMA
     Dosage: 200MG SEE DOSAGE TEXT
     Route: 048
     Dates: start: 20120913, end: 20121126
  2. TEMODAR [Suspect]
     Indication: PRODUCT USED FOR UNKNOWN INDICATION
     Route: 065
     Dates: start: 20130305
  3. MAGNESIUM [Concomitant]
  4. MULTIVITAMIN [Concomitant]
  5. SYNTHROID [Concomitant]

REACTIONS (3)
  - Death [Fatal]
  - Nasopharyngitis [Unknown]
  - Cough [Unknown]
